FAERS Safety Report 9512348 (Version 1)
Quarter: 2013Q3

REPORT INFORMATION
  Report Type: Spontaneous
  Country: US (occurrence: US)
  Receive Date: 20130910
  Receipt Date: 20130910
  Transmission Date: 20140515
  Serious: No
  Sender: FDA-Public Use
  Company Number: -SAAVPROD-BMS19013135

PATIENT
  Age: 61 Year
  Sex: Female

DRUGS (1)
  1. IRBESARTAN [Suspect]
     Indication: MITRAL VALVE PROLAPSE
     Dosage: TO DATE:MAY2012
     Dates: start: 201205, end: 201205

REACTIONS (2)
  - Dyspnoea [Recovered/Resolved]
  - Drug ineffective [Unknown]
